FAERS Safety Report 5376202-7 (Version None)
Quarter: 2007Q2

REPORT INFORMATION
  Report Type: 
  Country: None (occurrence: None)
  Receive Date: 20070627
  Receipt Date: 20070620
  Transmission Date: 20071010
  Serious: Yes (Hospitalization, Other)
  Sender: FDA-Public Use
  Company Number: CHNY2007FR01000

PATIENT
  Age: 53 Year
  Sex: Male
  Weight: 78 kg

DRUGS (12)
  1. NICOTINELL TTS(NCH)(NICOTINE) TRANS-THERAPEUTIC-SYSTEM [Suspect]
     Indication: SMOKING CESSATION THERAPY
     Dosage: 21 MG, QD, TRANSDERMAL
     Route: 062
     Dates: start: 20070216, end: 20070217
  2. TORENTAL (PENTOXIFYLLINE) [Concomitant]
  3. FONZYLANE (BUFLOMEDIL HYDROCHLORIDE) [Concomitant]
  4. ASPEGIC /FRA/ (ACETYLSALICYLATE LYSINE) [Concomitant]
  5. ESOMEPRAZOLE (ESOMEPRAZOLE) [Concomitant]
  6. NOZINAN /NET/ (LEVOMEPROMAZINE) [Concomitant]
  7. LORAZEPAM [Concomitant]
  8. XANAX [Concomitant]
  9. AMITRIPTYLINE HCL [Concomitant]
  10. VIBRAMYCIN D (DOXYCYCLINE) INJECTION [Concomitant]
  11. ACETAMINOPHEN [Concomitant]
  12. DAFLON (DIOSMIN) [Concomitant]

REACTIONS (6)
  - BRONCHOSPASM [None]
  - DYSPNOEA [None]
  - HEADACHE [None]
  - LUNG DISORDER [None]
  - NIGHTMARE [None]
  - PEAK EXPIRATORY FLOW RATE DECREASED [None]
